FAERS Safety Report 5830532-0 (Version None)
Quarter: 2008Q3

REPORT INFORMATION
  Report Type: 
  Country: None (occurrence: None)
  Receive Date: 20080801
  Receipt Date: 20070723
  Transmission Date: 20090109
  Serious: No
  Sender: FDA-Public Use
  Company Number: US-BRISTOL-MYERS SQUIBB COMPANY-13830047

PATIENT
  Sex: Male
  Weight: 73 kg

DRUGS (3)
  1. WARFARIN SODIUM [Suspect]
     Indication: THROMBOSIS
  2. CRESTOR [Concomitant]
  3. ASPIRIN [Concomitant]

REACTIONS (1)
  - PENILE ABSCESS [None]
